FAERS Safety Report 25867862 (Version 1)
Quarter: 2025Q4

REPORT INFORMATION
  Report Type: Report from Study
  Country: US (occurrence: US)
  Receive Date: 20251001
  Receipt Date: 20251001
  Transmission Date: 20260118
  Serious: No
  Sender: SANDOZ
  Company Number: US-SANDOZ-SDZ2025US006404

PATIENT
  Sex: Male

DRUGS (2)
  1. OMNITROPE [Suspect]
     Active Substance: SOMATROPIN
     Indication: Product used for unknown indication
     Dosage: 2.8 MG, QD (OMNITROPE 10 MG / 1.5 ML)
     Route: 058
     Dates: start: 20250128
  2. OMNITROPE [Suspect]
     Active Substance: SOMATROPIN
     Indication: Product used for unknown indication
     Dosage: 2.8 MG, QD (OMNITROPE 10 MG / 1.5 ML)
     Route: 058
     Dates: start: 20250128

REACTIONS (2)
  - Product dose omission issue [Unknown]
  - Device breakage [Unknown]
